FAERS Safety Report 8816722 (Version 1)
Quarter: 2012Q4

REPORT INFORMATION
  Report Type: Spontaneous
  Country: US (occurrence: None)
  Receive Date: 20121001
  Receipt Date: 20121001
  Transmission Date: 20130627
  Serious: Yes (Death, Hospitalization)
  Sender: FDA-Public Use
  Company Number: DKLU1084796

PATIENT
  Age: 16 Year
  Sex: Female

DRUGS (2)
  1. SABRIL (TABLET) (SABRIL) (VIGABATRIN) (500 MG, TABLET) [Suspect]
     Indication: GRAND MAL CONVULSION
     Dosage: AM
     Route: 048
     Dates: start: 20091203
  2. SABRIL (TABLET) (SABRIL) (VIGABATRIN) (500 MG, TABLET) [Suspect]
     Indication: GRAND MAL CONVULSION
     Dosage: PM
     Route: 048

REACTIONS (2)
  - Encephalitis [None]
  - Herpes virus infection [None]
